FAERS Safety Report 6457414-8 (Version None)
Quarter: 2009Q4

REPORT INFORMATION
  Report Type: 
  Country: None (occurrence: None)
  Receive Date: 20091125
  Receipt Date: 20091116
  Transmission Date: 20100525
  Serious: Yes (Hospitalization, Other)
  Sender: FDA-Public Use
  Company Number: DE-JNJFOC-20091104250

PATIENT
  Age: 33 Year
  Sex: Male

DRUGS (5)
  1. RISPERDAL [Suspect]
     Route: 048
     Dates: start: 20090728, end: 20090811
  2. RISPERDAL [Suspect]
     Route: 048
     Dates: start: 20090728, end: 20090811
  3. RISPERDAL [Suspect]
     Indication: DRUG USE FOR UNKNOWN INDICATION
     Route: 048
     Dates: start: 20090728, end: 20090811
  4. FLUANXOL DEPOT [Interacting]
     Indication: DRUG USE FOR UNKNOWN INDICATION
     Route: 030
  5. OLANZAPINE [Concomitant]
     Route: 048

REACTIONS (5)
  - ALANINE AMINOTRANSFERASE INCREASED [None]
  - ASPARTATE AMINOTRANSFERASE INCREASED [None]
  - BLOOD CREATINE PHOSPHOKINASE INCREASED [None]
  - BLOOD LACTATE DEHYDROGENASE INCREASED [None]
  - DRUG INTERACTION [None]
